FAERS Safety Report 8788628 (Version 1)
Quarter: 2012Q4

REPORT INFORMATION
  Report Type: 
  Country: US (occurrence: US)
  Receive Date: 20120917
  Receipt Date: 20120917
  Transmission Date: 20130627
  Serious: No
  Sender: FDA-Public Use
  Company Number: US-009507513-1209USA002989

PATIENT

DRUGS (2)
  1. DULERA [Suspect]
  2. ALBUTEROL [Concomitant]

REACTIONS (3)
  - Anxiety [Unknown]
  - Anger [Unknown]
  - Mood altered [Unknown]
